FAERS Safety Report 7505758-0 (Version None)
Quarter: 2011Q2

REPORT INFORMATION
  Report Type: 
  Country: None (occurrence: None)
  Receive Date: 20110404
  Receipt Date: 20101207
  Transmission Date: 20111010
  Serious: Yes (Other)
  Sender: FDA-Public Use
  Company Number: 012192

PATIENT
  Age: 50 Year
  Sex: Female

DRUGS (7)
  1. VALACYCLOVIR [Concomitant]
  2. BUSULFEX [Suspect]
     Indication: STEM CELL TRANSPLANT
     Dosage: 0.8 MG/KG, Q6HR, INTRAVENOUS
     Route: 042
  3. FLUDARENE (CHROMOCARB DIETHYLAMINE) [Concomitant]
  4. TACROLIMUS [Concomitant]
  5. DAPSONE [Concomitant]
  6. VORICONAZOLE [Concomitant]
  7. METHOTREXATE [Concomitant]

REACTIONS (3)
  - BRONCHOPULMONARY ASPERGILLOSIS [None]
  - CHRONIC GRAFT VERSUS HOST DISEASE [None]
  - NOCARDIOSIS [None]
